FAERS Safety Report 9130934 (Version 1)
Quarter: 2013Q1

REPORT INFORMATION
  Report Type: Spontaneous
  Country: US (occurrence: US)
  Receive Date: 20130301
  Receipt Date: 20130301
  Transmission Date: 20140127
  Serious: Yes (Other)
  Sender: FDA-Public Use
  Company Number: US-PFIZER INC-2013070803

PATIENT
  Age: 74 Year
  Sex: Female

DRUGS (11)
  1. ZOLOFT [Suspect]
     Indication: ANXIETY
     Dosage: 50 MG DAILY
     Dates: end: 201302
  2. ZOLOFT [Suspect]
     Indication: DEPRESSION
  3. LIPITOR [Suspect]
     Indication: BLOOD CHOLESTEROL INCREASED
     Dosage: 20 MG DAILY EVERY EVENING
  4. NEURONTIN [Suspect]
     Indication: DIABETIC NEUROPATHY
     Dosage: TWO 300 MG PILLS TWO TIMES A DAY
  5. COREG [Suspect]
     Indication: CARDIAC DISORDER
     Dosage: UNK
  6. COREG [Suspect]
     Dosage: 12.5 MG, 2X/DAY
  7. LASIX [Concomitant]
     Indication: CARDIAC FAILURE CONGESTIVE
     Dosage: 80 MG IN MORNING AND 40 MG IN EVENING
  8. ALDACTONE [Concomitant]
     Indication: CARDIAC FAILURE CONGESTIVE
     Dosage: 25 MG, UNK
  9. ZAROXOLYN [Concomitant]
     Indication: CARDIAC FAILURE CONGESTIVE
     Dosage: UNK
  10. ULORIC [Concomitant]
     Indication: GOUT
     Dosage: 40 MG, 2X/DAY
  11. OXYCODONE [Concomitant]
     Indication: ARTHRALGIA
     Dosage: UNK (THREE TIMES A DAY), AS NEEDED

REACTIONS (3)
  - Breast cancer female [Unknown]
  - Calcinosis [Unknown]
  - Intentional drug misuse [Unknown]
